FAERS Safety Report 7394464-1 (Version None)
Quarter: 2011Q2

REPORT INFORMATION
  Report Type: 
  Country: None (occurrence: None)
  Receive Date: 20110405
  Receipt Date: 20110322
  Transmission Date: 20111010
  Serious: Yes (Other)
  Sender: FDA-Public Use
  Company Number: PHHY2011US24321

PATIENT
  Sex: Female

DRUGS (7)
  1. FANAPT [Suspect]
     Dosage: 2 MG, BID
  2. LEXAPRO [Concomitant]
  3. THIOTHIXENE [Concomitant]
  4. METOPROLOL [Concomitant]
  5. LITHIUM CARBONATE [Concomitant]
  6. FANAPT [Suspect]
     Dosage: 1 MG, BID
  7. AMLODIPINE BESYLATE [Concomitant]

REACTIONS (1)
  - HALLUCINATION [None]
